FAERS Safety Report 17875017 (Version 3)
Quarter: 2020Q2

REPORT INFORMATION
  Report Type: Spontaneous
  Country: US (occurrence: US)
  Receive Date: 20200609
  Receipt Date: 20200618
  Transmission Date: 20200714
  Serious: No
  Sender: FDA-Public Use
  Company Number: US-PFIZER INC-2020223638

PATIENT
  Age: 81 Year
  Sex: Female
  Weight: 72.11 kg

DRUGS (2)
  1. LORBRENA [Suspect]
     Active Substance: LORLATINIB
     Indication: LUNG NEOPLASM MALIGNANT
     Dosage: 100 MG, 1X/DAY
     Route: 048
     Dates: start: 20200105
  2. LORBRENA [Suspect]
     Active Substance: LORLATINIB
     Indication: BRAIN CANCER METASTATIC
     Dosage: 75 MG, 1X/DAY
     Dates: start: 20200410

REACTIONS (1)
  - Pain [Unknown]
